FAERS Safety Report 19159281 (Version 2)
Quarter: 2021Q2

REPORT INFORMATION
  Report Type: Spontaneous
  Country: US (occurrence: US)
  Receive Date: 20210420
  Receipt Date: 20210421
  Transmission Date: 20210717
  Serious: No
  Sender: FDA-Public Use
  Company Number: US-PFIZER INC-2021404405

PATIENT
  Age: 43 Year
  Sex: Male

DRUGS (8)
  1. CELECOXIB. [Suspect]
     Active Substance: CELECOXIB
     Indication: HYPOAESTHESIA
     Dosage: 200 MG
     Dates: start: 20210119
  2. CELECOXIB. [Suspect]
     Active Substance: CELECOXIB
     Indication: PARAESTHESIA
  3. METHYLPREDNISOLONE. [Suspect]
     Active Substance: METHYLPREDNISOLONE
     Indication: PARAESTHESIA
  4. METHYLPREDNISOLONE. [Suspect]
     Active Substance: METHYLPREDNISOLONE
     Indication: BURNING SENSATION
  5. METHYLPREDNISOLONE. [Suspect]
     Active Substance: METHYLPREDNISOLONE
     Indication: GAIT INABILITY
  6. METHYLPREDNISOLONE. [Suspect]
     Active Substance: METHYLPREDNISOLONE
     Indication: HYPOAESTHESIA
     Dosage: 4 MG
     Dates: start: 20210211
  7. CELECOXIB. [Suspect]
     Active Substance: CELECOXIB
     Indication: BURNING SENSATION
  8. CELECOXIB. [Suspect]
     Active Substance: CELECOXIB
     Indication: GAIT INABILITY

REACTIONS (2)
  - Off label use [Unknown]
  - Drug ineffective for unapproved indication [Unknown]
